FAERS Safety Report 10179535 (Version 3)
Quarter: 2014Q3

REPORT INFORMATION
  Report Type: Spontaneous
  Country: US (occurrence: US)
  Receive Date: 20140519
  Receipt Date: 20140822
  Transmission Date: 20150326
  Serious: Yes (Death, Hospitalization, Other)
  Sender: FDA-Public Use
  Company Number: US-BAXTER-2014BAX023533

PATIENT
  Age: 43 Year
  Sex: Male

DRUGS (2)
  1. DIANEAL LOW CALCIUM PERITONEAL DIALYSIS SOLUTION WITH DEXTROSE [Suspect]
     Active Substance: CALCIUM CHLORIDE\DEXTROSE\MAGNESIUM CHLORIDE\SODIUM CHLORIDE\SODIUM LACTATE
     Indication: PERITONEAL DIALYSIS
     Route: 033
     Dates: start: 200906, end: 201202
  2. DIANEAL LOW CALCIUM PERITONEAL DIALYSIS SOLUTION WITH DEXTROSE [Suspect]
     Active Substance: CALCIUM CHLORIDE\DEXTROSE\MAGNESIUM CHLORIDE\SODIUM CHLORIDE\SODIUM LACTATE
     Indication: RENAL FAILURE CHRONIC
     Route: 033
     Dates: start: 201304, end: 20140729

REACTIONS (11)
  - Congenital cystic kidney disease [Fatal]
  - Coronary artery occlusion [Unknown]
  - Hernia [Recovered/Resolved]
  - Ultrafiltration failure [Unknown]
  - Cardiac disorder [Fatal]
  - Intestinal ischaemia [Unknown]
  - Hypotension [Unknown]
  - Peripheral arterial occlusive disease [Fatal]
  - Post-traumatic stress disorder [Fatal]
  - Myocardial infarction [Recovering/Resolving]
  - Gastrointestinal necrosis [Unknown]

NARRATIVE: CASE EVENT DATE: 201202
